FAERS Safety Report 9162037 (Version 1)
Quarter: 2013Q1

REPORT INFORMATION
  Report Type: Report from Study
  Country: GB (occurrence: GB)
  Receive Date: 20130314
  Receipt Date: 20130314
  Transmission Date: 20140127
  Serious: Yes (Hospitalization)
  Sender: FDA-Public Use
  Company Number: GB-JNJFOC-20130307659

PATIENT
  Age: 69 Year
  Sex: Male
  Weight: 97.4 kg

DRUGS (10)
  1. USTEKINUMAB [Suspect]
     Indication: PSORIASIS
     Route: 058
     Dates: start: 20120622, end: 20120720
  2. USTEKINUMAB [Suspect]
     Indication: PSORIASIS
     Route: 058
     Dates: start: 20121114
  3. PROPRANOLOL [Concomitant]
     Dates: start: 20050316
  4. PAROXETINE [Concomitant]
     Dates: start: 19990715
  5. COLCHICINE [Concomitant]
     Dates: start: 20121017
  6. VITAMIN D [Concomitant]
     Dates: start: 20120926
  7. ASPIRIN [Concomitant]
     Dates: start: 20121220
  8. FLUCLOXACILLIN [Concomitant]
     Dates: start: 20130117, end: 20130124
  9. VANCOMYCIN [Concomitant]
     Dates: start: 20130119, end: 20130119
  10. COAL TAR [Concomitant]
     Indication: PSORIASIS

REACTIONS (1)
  - Infected fistula [Recovered/Resolved]
